FAERS Safety Report 14978768 (Version 2)
Quarter: 2018Q2

REPORT INFORMATION
  Report Type: Other
  Country: DE (occurrence: DE)
  Receive Date: 20180606
  Receipt Date: 20180621
  Transmission Date: 20180711
  Serious: Yes (Other)
  Sender: FDA-Public Use
  Company Number: DE-HORMOSAN-2018-04152

PATIENT
  Sex: Female

DRUGS (10)
  1. SPASMEX                            /00376202/ [Concomitant]
     Active Substance: TROSPIUM CHLORIDE
     Indication: PRODUCT USED FOR UNKNOWN INDICATION
     Dosage: UNK
     Route: 065
  2. BUPRENORPHINE. [Concomitant]
     Active Substance: BUPRENORPHINE
     Indication: PRODUCT USED FOR UNKNOWN INDICATION
     Dosage: UNK
     Route: 065
  3. AMITRIPTYLINE [Concomitant]
     Active Substance: AMITRIPTYLINE
     Indication: PRODUCT USED FOR UNKNOWN INDICATION
     Dosage: UNK
     Route: 065
  4. CYMBALTA [Concomitant]
     Active Substance: DULOXETINE HYDROCHLORIDE
     Indication: PRODUCT USED FOR UNKNOWN INDICATION
     Dosage: UNK
     Route: 065
  5. TOPIRAMAT-HORMOSAN 100 MG FILMTABLETTEN [Suspect]
     Active Substance: TOPIRAMATE
     Indication: SEIZURE
     Dosage: 100 MG, BID (MORNING 100 MG AND 100 MG IN EVENING)
     Route: 048
  6. TOPIRAMAT-HORMOSAN 50 MG FILMTABLETTEN [Suspect]
     Active Substance: TOPIRAMATE
     Indication: SEIZURE
     Dosage: 50 MG, QD (50 MG IN EVENING)
     Route: 048
  7. TOPIRAMAT-HORMOSAN 50 MG FILMTABLETTEN [Suspect]
     Active Substance: TOPIRAMATE
     Dosage: 50 MG, QD (50 MG IN EVENING)
     Route: 048
     Dates: start: 2011
  8. BUPRENORPHINE. [Concomitant]
     Active Substance: BUPRENORPHINE
     Indication: PRODUCT USED FOR UNKNOWN INDICATION
     Dosage: UNK
     Route: 060
  9. TOPIRAMAT-HORMOSAN 100 MG FILMTABLETTEN [Suspect]
     Active Substance: TOPIRAMATE
     Dosage: 100 MG, BID (MORNING 100 MG AND 100 MG IN EVENING)
     Route: 048
     Dates: start: 2011
  10. NEXIUM [Concomitant]
     Active Substance: ESOMEPRAZOLE MAGNESIUM
     Indication: PRODUCT USED FOR UNKNOWN INDICATION
     Dosage: UNK
     Route: 065

REACTIONS (4)
  - Neurogenic bladder [Not Recovered/Not Resolved]
  - Night blindness [Not Recovered/Not Resolved]
  - Impaired gastric emptying [Not Recovered/Not Resolved]
  - Drug prescribing error [Unknown]
